FAERS Safety Report 15853400 (Version 1)
Quarter: 2019Q1

REPORT INFORMATION
  Report Type: Spontaneous
  Country: US (occurrence: US)
  Receive Date: 20190120
  Receipt Date: 20190120
  Transmission Date: 20190417
  Serious: Yes (Hospitalization, Disabling, Other)
  Sender: FDA-Public Use
  Company Number: None

PATIENT
  Age: 39 Year
  Sex: Female
  Weight: 52.65 kg

DRUGS (2)
  1. KEPPRA XR [Concomitant]
     Active Substance: LEVETIRACETAM
  2. KLONOPIN [Suspect]
     Active Substance: CLONAZEPAM
     Indication: EPILEPSY
     Dates: start: 20040101, end: 20190111

REACTIONS (6)
  - Fall [None]
  - Impaired driving ability [None]
  - Judgement impaired [None]
  - Impaired quality of life [None]
  - Memory impairment [None]
  - Impaired work ability [None]

NARRATIVE: CASE EVENT DATE: 20040315
